FAERS Safety Report 14931605 (Version 1)
Quarter: 2018Q2

REPORT INFORMATION
  Report Type: Spontaneous
  Country: US (occurrence: US)
  Receive Date: 20180524
  Receipt Date: 20180524
  Transmission Date: 20180711
  Serious: Yes (Other)
  Sender: FDA-Public Use
  Company Number: US-ACCORD-050325

PATIENT
  Sex: Female
  Weight: 90.72 kg

DRUGS (3)
  1. SINEQUAN [Concomitant]
     Active Substance: DOXEPIN HYDROCHLORIDE
     Dosage: 4 TO 6 MG
  2. QUETIAPINE. [Suspect]
     Active Substance: QUETIAPINE
     Indication: SLEEP DISORDER
     Dosage: STRENGTH: 200 MG AT EACH BEDTIME, BOTTLES OF 10
     Route: 048
  3. AMBIEN [Concomitant]
     Active Substance: ZOLPIDEM TARTRATE
     Indication: SLEEP DISORDER

REACTIONS (3)
  - Off label use [Unknown]
  - Drug ineffective [Unknown]
  - Nightmare [Not Recovered/Not Resolved]
